FAERS Safety Report 18457675 (Version 1)
Quarter: 2020Q4

REPORT INFORMATION
  Report Type: Spontaneous
  Country: SI (occurrence: SI)
  Receive Date: 20201103
  Receipt Date: 20201103
  Transmission Date: 20210114
  Serious: Yes (Hospitalization, Other)
  Sender: FDA-Public Use
  Company Number: SI-MACLEODS PHARMACEUTICALS US LTD-MAC2020028853

PATIENT

DRUGS (1)
  1. QUETIAPINE. [Suspect]
     Active Substance: QUETIAPINE
     Indication: SCHIZOPHRENIA
     Dosage: 12000 MILLIGRAM, SINGLE, INGESTION
     Route: 065

REACTIONS (8)
  - Intentional overdose [Recovered/Resolved]
  - Rhabdomyolysis [Recovering/Resolving]
  - Blood creatine phosphokinase increased [Recovering/Resolving]
  - Contusion [Unknown]
  - Fatigue [Unknown]
  - Hypersomnia [Recovered/Resolved]
  - Toxicity to various agents [Recovered/Resolved]
  - Anxiety [Unknown]
